FAERS Safety Report 10062399 (Version 2)
Quarter: 2014Q2

REPORT INFORMATION
  Report Type: Spontaneous
  Country: US (occurrence: US)
  Receive Date: 20140407
  Receipt Date: 20140501
  Transmission Date: 20141212
  Serious: No
  Sender: FDA-Public Use
  Company Number: US-PFIZER INC-2014094505

PATIENT
  Sex: Female

DRUGS (2)
  1. LYRICA [Suspect]
     Dosage: 150 MG, 3X/DAY
  2. PREMARIN [Suspect]
     Dosage: UNK

REACTIONS (1)
  - Hot flush [Unknown]
